FAERS Safety Report 12576444 (Version 2)
Quarter: 2016Q3

REPORT INFORMATION
  Report Type: Spontaneous
  Country: US (occurrence: US)
  Receive Date: 20160720
  Receipt Date: 20160809
  Transmission Date: 20161109
  Serious: Yes (Hospitalization)
  Sender: FDA-Public Use
  Company Number: US-JNJFOC-20160620337

PATIENT
  Age: 92 Year
  Sex: Female

DRUGS (6)
  1. XARELTO [Suspect]
     Active Substance: RIVAROXABAN
     Indication: THROMBOSIS PROPHYLAXIS
     Dosage: VARYING DOSE OF 20MG AND 15MG
     Route: 048
     Dates: start: 20150120, end: 201506
  2. XARELTO [Suspect]
     Active Substance: RIVAROXABAN
     Indication: ATRIAL FIBRILLATION
     Dosage: VARYING DOSE OF 20MG AND 15MG
     Route: 048
     Dates: start: 20150120, end: 201506
  3. XARELTO [Suspect]
     Active Substance: RIVAROXABAN
     Indication: CEREBROVASCULAR ACCIDENT PROPHYLAXIS
     Dosage: VARYING DOSE OF 20MG AND 15MG
     Route: 048
     Dates: start: 20150120, end: 201506
  4. XARELTO [Suspect]
     Active Substance: RIVAROXABAN
     Indication: THROMBOSIS PROPHYLAXIS
     Route: 048
     Dates: end: 201509
  5. XARELTO [Suspect]
     Active Substance: RIVAROXABAN
     Indication: ATRIAL FIBRILLATION
     Route: 048
     Dates: end: 201509
  6. XARELTO [Suspect]
     Active Substance: RIVAROXABAN
     Indication: CEREBROVASCULAR ACCIDENT PROPHYLAXIS
     Route: 048
     Dates: end: 201509

REACTIONS (4)
  - Vitamin D deficiency [Unknown]
  - Pulmonary hypertension [Unknown]
  - Gastrointestinal haemorrhage [Unknown]
  - Asthma [Unknown]

NARRATIVE: CASE EVENT DATE: 201509
